FAERS Safety Report 16597206 (Version 1)
Quarter: 2019Q3

REPORT INFORMATION
  Report Type: Spontaneous
  Country: CN (occurrence: CN)
  Receive Date: 20190719
  Receipt Date: 20190719
  Transmission Date: 20191004
  Serious: Yes (Other)
  Sender: FDA-Public Use
  Company Number: CN-SUN PHARMACEUTICAL INDUSTRIES LTD-2019R1-197000

PATIENT
  Age: 34 Year
  Sex: Female

DRUGS (17)
  1. GEMCITABINE. [Suspect]
     Active Substance: GEMCITABINE
     Indication: OVARIAN GERM CELL TUMOUR
     Dosage: UNK
     Route: 065
     Dates: start: 20170705
  2. ACTINOMYCIN D [Suspect]
     Active Substance: DACTINOMYCIN
     Indication: OVARIAN GERM CELL TUMOUR
     Dosage: UNK
     Route: 065
  3. DOCETAXEL. [Suspect]
     Active Substance: DOCETAXEL
     Indication: OVARIAN GERM CELL TUMOUR
     Dosage: UNK
     Route: 065
  4. CYCLOPHOSPHAMIDE. [Suspect]
     Active Substance: CYCLOPHOSPHAMIDE
     Indication: OVARIAN GERM CELL TUMOUR
     Dosage: UNK
     Route: 065
  5. CISPLATIN. [Suspect]
     Active Substance: CISPLATIN
     Indication: OVARIAN GERM CELL TUMOUR
     Dosage: 3-DAY REGIMEN
     Route: 065
  6. ERLOTINIB [Suspect]
     Active Substance: ERLOTINIB
     Indication: OVARIAN GERM CELL TUMOUR
     Dosage: UNK
     Route: 065
  7. BLEOMYCIN [Suspect]
     Active Substance: BLEOMYCIN SULFATE
     Indication: OVARIAN GERM CELL TUMOUR
     Dosage: UNK
     Route: 065
  8. PACLITAXEL. [Suspect]
     Active Substance: PACLITAXEL
     Indication: OVARIAN GERM CELL TUMOUR
     Dosage: UNK
     Route: 065
  9. DOCETAXEL. [Suspect]
     Active Substance: DOCETAXEL
     Dosage: UNK
     Route: 065
     Dates: start: 20170705
  10. METHOTREXATE. [Suspect]
     Active Substance: METHOTREXATE
     Indication: OVARIAN GERM CELL TUMOUR
     Dosage: UNK
     Route: 065
  11. AFATINIB [Suspect]
     Active Substance: AFATINIB
     Indication: OVARIAN GERM CELL TUMOUR
     Dosage: UNK
     Route: 065
  12. ETOPOSIDE. [Suspect]
     Active Substance: ETOPOSIDE
     Indication: OVARIAN GERM CELL TUMOUR
     Dosage: UNK
     Route: 065
  13. GEFITINIB. [Suspect]
     Active Substance: GEFITINIB
     Indication: OVARIAN GERM CELL TUMOUR
     Dosage: UNK
     Route: 065
  14. BEVACIZUMAB. [Suspect]
     Active Substance: BEVACIZUMAB
     Indication: OVARIAN GERM CELL TUMOUR
     Dosage: UNK
     Route: 065
  15. VINCRISTINE [Suspect]
     Active Substance: VINCRISTINE
     Indication: OVARIAN GERM CELL TUMOUR
     Dosage: UNK
     Route: 065
  16. ICOTINIB [Suspect]
     Active Substance: ICOTINIB
     Indication: OVARIAN GERM CELL TUMOUR
     Dosage: UNK
     Route: 065
  17. IFOSFAMIDE. [Suspect]
     Active Substance: IFOSFAMIDE
     Indication: OVARIAN GERM CELL TUMOUR
     Dosage: UNK
     Route: 065

REACTIONS (7)
  - Neurotoxicity [Unknown]
  - Renal impairment [Unknown]
  - Fatigue [Unknown]
  - Therapy partial responder [Unknown]
  - Bone marrow failure [Unknown]
  - Drug ineffective [Unknown]
  - Neoplasm progression [Unknown]
